FAERS Safety Report 11393273 (Version 1)
Quarter: 2015Q3

REPORT INFORMATION
  Report Type: Spontaneous
  Country: IT (occurrence: IT)
  Receive Date: 20150818
  Receipt Date: 20150818
  Transmission Date: 20151125
  Serious: Yes (Hospitalization, Other)
  Sender: FDA-Public Use
  Company Number: PHHY2015IT097899

PATIENT
  Age: 24 Year
  Sex: Female

DRUGS (1)
  1. CARBAMAZEPINE. [Suspect]
     Active Substance: CARBAMAZEPINE
     Indication: TRIGEMINAL NEURALGIA
     Dosage: 400 MG, QD
     Route: 065

REACTIONS (6)
  - Demyelination [Recovered/Resolved]
  - Central nervous system lesion [Recovered/Resolved]
  - Visual impairment [Recovered/Resolved]
  - Altered visual depth perception [Recovered/Resolved]
  - Cytotoxic oedema [Recovered/Resolved]
  - Balance disorder [Recovered/Resolved]
